FAERS Safety Report 23814879 (Version 2)
Quarter: 2024Q3

REPORT INFORMATION
  Report Type: Report from Study
  Country: PH (occurrence: PH)
  Receive Date: 20240503
  Receipt Date: 20240910
  Transmission Date: 20241017
  Serious: Yes (Death, Hospitalization)
  Sender: OTSUKA
  Company Number: PH-OTSUKA-2024_012085

PATIENT
  Age: 63 Year
  Sex: Male

DRUGS (1)
  1. TOLVAPTAN [Suspect]
     Active Substance: TOLVAPTAN
     Indication: Cardiac failure
     Dosage: 15 MG, QD (ONE TABLET A DAY)
     Route: 048
     Dates: start: 202404, end: 20240516

REACTIONS (3)
  - Death [Fatal]
  - Ejection fraction decreased [Unknown]
  - Cardiac failure [Unknown]

NARRATIVE: CASE EVENT DATE: 20240516
